FAERS Safety Report 17554001 (Version 1)
Quarter: 2020Q1

REPORT INFORMATION
  Report Type: Report from Study
  Country: IT (occurrence: IT)
  Receive Date: 20200318
  Receipt Date: 20200318
  Transmission Date: 20200409
  Serious: Yes (Hospitalization)
  Sender: FDA-Public Use
  Company Number: IT-TEVA-2020-IT-1202440

PATIENT
  Age: 66 Year
  Sex: Male

DRUGS (3)
  1. ENALAPRIL MALEATE TABLETS USP, 2.5MG, 5MG, 10MG, 20MG [Suspect]
     Active Substance: ENALAPRIL MALEATE
     Indication: HYPERTENSION
     Dosage: 20 MG
     Route: 048
     Dates: start: 20200128, end: 20200128
  2. TICLOPIDINE [Concomitant]
     Active Substance: TICLOPIDINE
  3. AMLODIPINE [Concomitant]
     Active Substance: AMLODIPINE BESYLATE

REACTIONS (2)
  - Hypersensitivity [Recovering/Resolving]
  - Angioedema [Recovering/Resolving]

NARRATIVE: CASE EVENT DATE: 20200128
